FAERS Safety Report 24771619 (Version 1)
Quarter: 2024Q4

REPORT INFORMATION
  Report Type: Report from Study
  Country: US (occurrence: US)
  Receive Date: 20241224
  Receipt Date: 20241224
  Transmission Date: 20250115
  Serious: Yes (Other)
  Sender: VERITY PHARMACEUTICALS INC.
  Company Number: US-VER-202400376

PATIENT
  Sex: Male

DRUGS (1)
  1. TRIPTORELIN [Suspect]
     Active Substance: TRIPTORELIN
     Indication: Prostate cancer metastatic
     Dosage: POWDER AND SOLVENT FOR SUSPENSION FOR INJECTION
     Route: 065

REACTIONS (22)
  - Alopecia [Unknown]
  - Anaemia [Unknown]
  - Constipation [Unknown]
  - Erectile dysfunction [Unknown]
  - Loss of libido [Unknown]
  - Diarrhoea [Unknown]
  - Erectile dysfunction [Unknown]
  - Fatigue [Unknown]
  - Gastrointestinal disorder [Unknown]
  - Hot flush [Unknown]
  - Hypertension [Unknown]
  - Immunodeficiency [Unknown]
  - Erectile dysfunction [Unknown]
  - Nail disorder [Unknown]
  - Nausea [Unknown]
  - Oedema [Unknown]
  - Pain [Unknown]
  - Pruritus [Unknown]
  - Rash [Unknown]
  - Skin reaction [Unknown]
  - Testicular atrophy [Unknown]
  - Thrombocytopenia [Unknown]
